FAERS Safety Report 26081080 (Version 1)
Quarter: 2025Q4

REPORT INFORMATION
  Report Type: Spontaneous
  Country: US (occurrence: US)
  Receive Date: 20251124
  Receipt Date: 20251124
  Transmission Date: 20260117
  Serious: No
  Sender: ALVOGEN
  Company Number: US-ALVOGEN-2025096148

PATIENT
  Sex: Female

DRUGS (2)
  1. TERIPARATIDE [Suspect]
     Active Substance: TERIPARATIDE
     Indication: Product used for unknown indication
     Dosage: STRENGTH: 620 MCG/2.48 ML (250 MCG/ML, 20 MCG DAILY)
     Route: 058
     Dates: start: 2024
  2. TERIPARATIDE [Suspect]
     Active Substance: TERIPARATIDE
     Indication: Product used for unknown indication
     Dosage: EXPIRATION DATE: JUL-2025?STRENGTH: 620 MCG/2.48 ML (250 MCG/ML, 20 MCG DAILY)?(01) 00347781652890
     Route: 058
     Dates: start: 2025

REACTIONS (2)
  - Product dose omission issue [Unknown]
  - Device physical property issue [Unknown]

NARRATIVE: CASE EVENT DATE: 20250101
